FAERS Safety Report 16797960 (Version 1)
Quarter: 2019Q3

REPORT INFORMATION
  Report Type: Spontaneous
  Country: IN (occurrence: IN)
  Receive Date: 20190912
  Receipt Date: 20190912
  Transmission Date: 20191005
  Serious: Yes (Hospitalization, Other)
  Sender: FDA-Public Use
  Company Number: IN-EMCURE PHARMACEUTICALS LTD-2019-EPL-0646

PATIENT
  Age: 60 Year
  Sex: Male

DRUGS (3)
  1. CARBOPLATIN. [Suspect]
     Active Substance: CARBOPLATIN
     Indication: NON-SMALL CELL LUNG CANCER STAGE IIIB
     Dosage: UNK
  2. GROSERELIN [Suspect]
     Active Substance: GOSERELIN
     Indication: NON-SMALL CELL LUNG CANCER STAGE IIIB
     Dates: start: 2017, end: 2017
  3. GEMCITABINE HYDROCHLORIDE. [Suspect]
     Active Substance: GEMCITABINE HYDROCHLORIDE
     Indication: NON-SMALL CELL LUNG CANCER STAGE IIIB

REACTIONS (2)
  - Pancreatitis acute [Recovered/Resolved]
  - Drug hypersensitivity [Unknown]

NARRATIVE: CASE EVENT DATE: 2017
